FAERS Safety Report 16895999 (Version 2)
Quarter: 2019Q4

REPORT INFORMATION
  Report Type: Spontaneous
  Country: JP (occurrence: JP)
  Receive Date: 20191008
  Receipt Date: 20191105
  Transmission Date: 20200122
  Serious: Yes (Other)
  Sender: FDA-Public Use
  Company Number: JP-GUERBET-JP-20190180

PATIENT
  Age: 4 Decade
  Sex: Female

DRUGS (1)
  1. LIPIODOL [Suspect]
     Active Substance: ETHIODIZED OIL
     Indication: SALPINGOGRAM
     Route: 065

REACTIONS (2)
  - Product residue present [Recovered/Resolved]
  - Cyst [Recovered/Resolved]
